FAERS Safety Report 7052475-X (Version None)
Quarter: 2010Q4

REPORT INFORMATION
  Report Type: 
  Country: None (occurrence: None)
  Receive Date: 20101019
  Receipt Date: 20101015
  Transmission Date: 20110411
  Serious: Yes (Other)
  Sender: FDA-Public Use
  Company Number: GB-PFIZER INC-2010131088

PATIENT

DRUGS (1)
  1. DIFLUCAN [Suspect]
     Dosage: 150 UNIT DOSE UNSPECIFIED

REACTIONS (1)
  - AGEUSIA [None]
